FAERS Safety Report 4705156-9 (Version None)
Quarter: 2005Q3

REPORT INFORMATION
  Report Type: 
  Country: None (occurrence: None)
  Receive Date: 20050701
  Receipt Date: 20050627
  Transmission Date: 20060218
  Serious: Yes (Life-Threatening, Other)
  Sender: FDA-Public Use
  Company Number: 2005GB01232

PATIENT
  Age: 56 Year
  Sex: Male
  Weight: 95 kg

DRUGS (4)
  1. LISINOPRIL [Suspect]
     Indication: ESSENTIAL HYPERTENSION
     Route: 048
     Dates: start: 20050207, end: 20050617
  2. ATENOLOL [Concomitant]
     Route: 065
     Dates: start: 20040906
  3. AMLODIPINE [Concomitant]
     Route: 065
     Dates: start: 20040906
  4. OMEPRAZOLE [Concomitant]
     Route: 065
     Dates: end: 20050510

REACTIONS (5)
  - ASTHENIA [None]
  - BLOOD CREATINE PHOSPHOKINASE INCREASED [None]
  - COORDINATION ABNORMAL [None]
  - MYALGIA [None]
  - MYOSITIS [None]
